FAERS Safety Report 20116156 (Version 1)
Quarter: 2021Q4

REPORT INFORMATION
  Report Type: Spontaneous
  Country: CA (occurrence: CA)
  Receive Date: 20211126
  Receipt Date: 20211126
  Transmission Date: 20220304
  Serious: Yes (Hospitalization, Other)
  Sender: FDA-Public Use
  Company Number: CA-SA-SAC20211122001596

PATIENT
  Age: 56 Year
  Sex: Male

DRUGS (48)
  1. CICLOPIROX [Suspect]
     Active Substance: CICLOPIROX
     Indication: Product used for unknown indication
     Dosage: UNKN
  2. CICLOPIROX OLAMINE [Suspect]
     Active Substance: CICLOPIROX OLAMINE
     Indication: Product used for unknown indication
  3. DILTIAZEM HYDROCHLORIDE [Suspect]
     Active Substance: DILTIAZEM HYDROCHLORIDE
     Indication: Product used for unknown indication
     Dosage: UNK (1 IN 24HR)
     Route: 065
  4. DILTIAZEM HYDROCHLORIDE [Suspect]
     Active Substance: DILTIAZEM HYDROCHLORIDE
     Dosage: UNK (1 IN 24HR)
     Route: 048
  5. METOCLOPRAMIDE HYDROCHLORIDE [Suspect]
     Active Substance: METOCLOPRAMIDE HYDROCHLORIDE
     Indication: Migraine
     Dosage: UNK (1 IN 24HR)
     Route: 048
  6. METOCLOPRAMIDE HYDROCHLORIDE [Suspect]
     Active Substance: METOCLOPRAMIDE HYDROCHLORIDE
     Dosage: UNK (1 IN 8HR)
     Route: 048
  7. METOCLOPRAMIDE HYDROCHLORIDE [Suspect]
     Active Substance: METOCLOPRAMIDE HYDROCHLORIDE
     Dosage: UNK (1 IN 8HR)
     Route: 065
  8. NITROGLYCERIN [Suspect]
     Active Substance: NITROGLYCERIN
     Indication: Prinzmetal angina
     Dosage: UNK (1 IN 24HR)
     Route: 065
  9. NITROGLYCERIN [Suspect]
     Active Substance: NITROGLYCERIN
     Dosage: UNK (1 IN 8HR)
     Route: 065
  10. AMLODIPINE BESYLATE [Suspect]
     Active Substance: AMLODIPINE BESYLATE
     Indication: Product used for unknown indication
     Dosage: DAILY DOSE : 1) (1 IN 24 HR) ROUTE OF ADMIN : 1) UNKNOWN
  11. DELATESTRYL [Suspect]
     Active Substance: TESTOSTERONE ENANTHATE
     Indication: Product used for unknown indication
     Dosage: 0.5 ML
     Route: 030
  12. DELATESTRYL [Suspect]
     Active Substance: TESTOSTERONE ENANTHATE
     Dosage: 0.5 ML (1 IN 24 HR)
     Route: 065
  13. DELATESTRYL [Suspect]
     Active Substance: TESTOSTERONE ENANTHATE
     Dosage: 0.5 ML (1 IN 12 HR)
     Route: 030
  14. DELATESTRYL [Suspect]
     Active Substance: TESTOSTERONE ENANTHATE
     Dosage: 5 ML
     Route: 065
  15. NITROGLYCERIN [Suspect]
     Active Substance: NITROGLYCERIN
     Indication: Prinzmetal angina
     Dosage: UNK (1 IN 24HR)
     Route: 048
  16. NITROGLYCERIN [Suspect]
     Active Substance: NITROGLYCERIN
     Dosage: UNK (1 IN 8HR)
     Route: 048
  17. NITROGLYCERIN [Suspect]
     Active Substance: NITROGLYCERIN
     Dosage: UNK (1 IN 24HR)
     Route: 048
  18. NITROGLYCERIN [Suspect]
     Active Substance: NITROGLYCERIN
     Dosage: UNK (1 IN 24HR)
     Route: 048
  19. ACETAMINOPHEN\CODEINE PHOSPHATE [Suspect]
     Active Substance: ACETAMINOPHEN\CODEINE PHOSPHATE
     Indication: Product used for unknown indication
     Dosage: DAILY DOSE : 2) (1 IN 6 HR) 3) (1 IN 24 HR) 4) (1 IN 6 HR) ROUTE OF ADMIN : 1) ORAL 2) UNKNOWN 3) OR
  20. ASPIRIN [Suspect]
     Active Substance: ASPIRIN
     Indication: Product used for unknown indication
     Dosage: 81 MG (1 IN 24 HR)
     Route: 048
  21. TRAZODONE HYDROCHLORIDE [Suspect]
     Active Substance: TRAZODONE HYDROCHLORIDE
     Indication: Product used for unknown indication
     Dosage: UNK (1IN24HR)
     Route: 048
  22. TRAZODONE HYDROCHLORIDE [Suspect]
     Active Substance: TRAZODONE HYDROCHLORIDE
     Dosage: UNK (1IN24HR)
     Route: 065
  23. ASPIRIN [Suspect]
     Active Substance: ASPIRIN
     Indication: Product used for unknown indication
     Dosage: UNK (1IN24HR)
     Route: 048
  24. ASPIRIN [Suspect]
     Active Substance: ASPIRIN
     Dosage: UNK (1IN24HR)
     Route: 065
  25. ASPIRIN [Suspect]
     Active Substance: ASPIRIN
     Dosage: 81 MG (1IN24HR)
     Route: 065
  26. BISOPROLOL [Suspect]
     Active Substance: BISOPROLOL
     Indication: Product used for unknown indication
     Dosage: DAILY DOSE : 1) (1 IN 1 D) ROUTE OF ADMIN : 1) UNKNOWN
  27. BISOPROLOL FUMARATE [Suspect]
     Active Substance: BISOPROLOL FUMARATE
     Indication: Product used for unknown indication
     Dosage: DAILY DOSE : 1) (1 IN 24 HR) ROUTE OF ADMIN : 1) ORAL
  28. BRILINTA [Suspect]
     Active Substance: TICAGRELOR
     Indication: Product used for unknown indication
     Dosage: DAILY DOSE : 1)(1IN12HR) 2)(1IN12HR) 3)(1IN24HR)
  29. DEXILANT [Suspect]
     Active Substance: DEXLANSOPRAZOLE
     Indication: Product used for unknown indication
     Dosage: DELAYED RELEASE 0.5ML(1IN24HR) 2)(1IN1D)
  30. METOCLOPRAMIDE [Suspect]
     Active Substance: METOCLOPRAMIDE
     Indication: Migraine
     Dosage: DAILY DOSE :(1IN8HR)
     Route: 065
  31. HYDROCORTISONE [Suspect]
     Active Substance: HYDROCORTISONE
     Indication: Product used for unknown indication
     Dosage: DAILY DOSE : 1) (1 IN 24 HR) ROUTE OF ADMIN : 1) TOPICAL
  32. ROSUVASTATIN [Suspect]
     Active Substance: ROSUVASTATIN
     Indication: Product used for unknown indication
     Dosage: DAILY DOSE : 1) (1 IN 24 HR) 2) (1 IN 24 HR) ROUTE OF ADMIN : 1) ORAL 2) UNKNOWN INDICATION FOR USE
  33. ESCITALOPRAM [Suspect]
     Active Substance: ESCITALOPRAM OXALATE
     Indication: Prinzmetal angina
     Dosage: DAILY DOSE : 1) (1 IN 24 HR) ROUTE OF ADMIN : 1) UNKNOWN
  34. ESCITALOPRAM OXALATE [Suspect]
     Active Substance: ESCITALOPRAM OXALATE
     Indication: Prinzmetal angina
     Dosage: DAILY DOSE : 1) (1 IN 24 HR) ROUTE OF ADMIN : 1) UNKNOWN
  35. MORNIFLUMATE [Suspect]
     Active Substance: MORNIFLUMATE
     Indication: Product used for unknown indication
     Dosage: DAILY DOSE : 1) (1 IN 24 HR) ROUTE OF ADMIN : 1) UNKNOWN
  36. MOMETASONE FUROATE [Suspect]
     Active Substance: MOMETASONE FUROATE
     Indication: Product used for unknown indication
     Dosage: DAILY DOSE : 1) INTRA-NASAL (1 IN 24 HR) 2) (1 IN 24 HR) 3) SPRAY, METERED DOSE (1 IN 24 HR) 4) (1 I
  37. NASONEX [Suspect]
     Active Substance: MOMETASONE FUROATE
     Indication: Product used for unknown indication
     Dosage: UNK (1 IN 24 HR)
     Route: 045
  38. NASONEX [Suspect]
     Active Substance: MOMETASONE FUROATE
     Dosage: UNK (1IN24HR)
     Route: 065
  39. NASONEX [Suspect]
     Active Substance: MOMETASONE FUROATE
     Dosage: UNK SPRAY, METERED DOSE (1 IN 24 HR)
     Route: 045
  40. NASONEX [Suspect]
     Active Substance: MOMETASONE FUROATE
     Dosage: UNK (1IN24HR)
     Route: 055
  41. NITRO-DUR [Suspect]
     Active Substance: NITROGLYCERIN
     Indication: Product used for unknown indication
     Dosage: UNK (1 IN 24 HR)
     Route: 065
  42. ZOPICLONE [Suspect]
     Active Substance: ZOPICLONE
     Indication: Product used for unknown indication
     Dosage: DAILY DOSE : 1) (1 IN 24 HR) ROUTE OF ADMIN : 1) ORAL
  43. CLONAZEPAM [Suspect]
     Active Substance: CLONAZEPAM
     Indication: Product used for unknown indication
     Dosage: DAILY DOSE : 1) (1 IN 8 HR) 2) (1 IN 24 HR) ROUTE OF ADMIN : 1) ORAL 2) ORAL
  44. ROSUVASTATIN CALCIUM [Suspect]
     Active Substance: ROSUVASTATIN CALCIUM
     Indication: Product used for unknown indication
     Dosage: DAILY DOSE : 1) (1 IN 24 HR) ROUTE OF ADMIN : 1) UNKNOWN 2) ORAL
  45. SYNTHROID [Suspect]
     Active Substance: LEVOTHYROXINE SODIUM
     Indication: Product used for unknown indication
     Dosage: DAILY DOSE : 1) (1 IN 24 HR) ROUTE OF ADMIN : 1) UNKNOWN
  46. TAMSULOSIN HYDROCHLORIDE [Suspect]
     Active Substance: TAMSULOSIN HYDROCHLORIDE
     Indication: Product used for unknown indication
     Dosage: DAILY DOSE : 1) (1 IN 24 HR) ROUTE OF ADMIN : 1) ORAL
  47. TESTOSTERONE [Suspect]
     Active Substance: TESTOSTERONE
     Indication: Product used for unknown indication
     Dosage: DAILY DOSE : 1) 0.5 ML ROUTE OF ADMIN : 1) UNKNOWN
  48. TRAZODONE HYDROCHLORIDE [Suspect]
     Active Substance: TRAZODONE HYDROCHLORIDE
     Indication: Product used for unknown indication
     Dosage: DAILY DOSE : 1) (1 IN 24 HR) ROUTE OF ADMIN : 1) UNKNOWN

REACTIONS (3)
  - Device malfunction [Recovered/Resolved]
  - Device dislocation [Recovered/Resolved]
  - Drug ineffective [Recovered/Resolved]
